FAERS Safety Report 14227455 (Version 2)
Quarter: 2017Q4

REPORT INFORMATION
  Report Type: Spontaneous
  Country: DE (occurrence: DE)
  Receive Date: 20171127
  Receipt Date: 20171212
  Transmission Date: 20180321
  Serious: Yes (Other)
  Sender: FDA-Public Use
  Company Number: DE-PFIZER INC-2017506584

PATIENT
  Age: 59 Year
  Sex: Female

DRUGS (14)
  1. AMISULPRIDE [Concomitant]
     Active Substance: AMISULPRIDE
     Dosage: UP TO 400 MG/DAY
     Dates: start: 2016, end: 2016
  2. ARIPIPRAZOLE. [Concomitant]
     Active Substance: ARIPIPRAZOLE
     Dosage: UP TO 15 MG/DAY
     Dates: start: 2016, end: 2016
  3. AMISULPRIDE [Concomitant]
     Active Substance: AMISULPRIDE
     Dosage: UP TO 400 MG/DAY
  4. LORAZEPAM. [Concomitant]
     Active Substance: LORAZEPAM
     Dosage: UP TO 5 MG/DAY
  5. METHYLPREDNISOLONE. [Suspect]
     Active Substance: METHYLPREDNISOLONE
     Indication: HASHIMOTO^S ENCEPHALOPATHY
     Dosage: 5 MG ? 500 MG FOR FIVE CONSECUTIVE DAYS
     Dates: start: 2016, end: 201609
  6. VENLAFAXINE [Concomitant]
     Active Substance: VENLAFAXINE HYDROCHLORIDE
     Indication: ANTIDEPRESSANT THERAPY
     Dosage: UP TO 150 MG/DAY
     Dates: start: 2016, end: 2016
  7. FLUPENTIXOL [Concomitant]
     Active Substance: FLUPENTIXOL
     Dosage: UP TO 1.5 MG/DAY
  8. QUETIAPINE. [Concomitant]
     Active Substance: QUETIAPINE
     Dosage: UP TO 200 MG/DAY
  9. FLUPENTIXOL [Concomitant]
     Active Substance: FLUPENTIXOL
     Dosage: UP TO 1.5 MG/DAY
     Dates: start: 2016, end: 2016
  10. LORAZEPAM. [Concomitant]
     Active Substance: LORAZEPAM
     Dosage: UP TO 5 MG/DAY
     Dates: start: 2016, end: 2016
  11. RISPERIDONE. [Concomitant]
     Active Substance: RISPERIDONE
     Dosage: UP TO 4 MG/DAY
  12. RISPERIDONE. [Concomitant]
     Active Substance: RISPERIDONE
     Dosage: UP TO 4 MG/DAY
     Dates: start: 2016, end: 2016
  13. CITALOPRAM [Concomitant]
     Active Substance: CITALOPRAM HYDROBROMIDE
     Indication: ANTIDEPRESSANT THERAPY
     Dosage: UP TO 20 MG/DAY
     Dates: start: 2016, end: 2016
  14. QUETIAPINE. [Concomitant]
     Active Substance: QUETIAPINE
     Dosage: UP TO 200 MG/DAY
     Dates: start: 2016, end: 2016

REACTIONS (4)
  - Condition aggravated [Recovering/Resolving]
  - Cognitive disorder [Recovering/Resolving]
  - Apathy [Recovering/Resolving]
  - Drug ineffective [Unknown]

NARRATIVE: CASE EVENT DATE: 2016
